FAERS Safety Report 16561975 (Version 1)
Quarter: 2019Q3

REPORT INFORMATION
  Report Type: Spontaneous
  Country: ES (occurrence: ES)
  Receive Date: 20190711
  Receipt Date: 20190711
  Transmission Date: 20191004
  Serious: Yes (Hospitalization)
  Sender: FDA-Public Use
  Company Number: ES-MYLANLABS-2019M1063257

PATIENT
  Age: 17 Month
  Sex: Female
  Weight: 12.1 kg

DRUGS (2)
  1. LORMETAZEPAM [Suspect]
     Active Substance: LORMETAZEPAM
     Indication: PRODUCT USED FOR UNKNOWN INDICATION
     Dosage: 1 MILLIGRAM, TOTAL, HALF TABLET
  2. QUETIAPINE. [Suspect]
     Active Substance: QUETIAPINE
     Indication: PRODUCT USED FOR UNKNOWN INDICATION
     Dosage: 50 MILLIGRAM, TOTAL,2 TABLETS

REACTIONS (7)
  - Platelet count decreased [Recovered/Resolved]
  - Accidental overdose [Recovered/Resolved]
  - Neutropenia [Recovered/Resolved]
  - False positive investigation result [Unknown]
  - Urinary retention [Recovered/Resolved]
  - Depressed level of consciousness [Recovered/Resolved]
  - Accidental exposure to product by child [Recovered/Resolved]
